FAERS Safety Report 6372378-3 (Version None)
Quarter: 2009Q3

REPORT INFORMATION
  Report Type: 
  Country: None (occurrence: None)
  Receive Date: 20090924
  Receipt Date: 20080929
  Transmission Date: 20100115
  Serious: No
  Sender: FDA-Public Use
  Company Number: US-ASTRAZENECA-2008UW21233

PATIENT
  Age: 58 Year
  Sex: Female

DRUGS (5)
  1. SEROQUEL [Suspect]
     Indication: BIPOLAR I DISORDER
     Dosage: 600 MG FOR ABOUT 6 MONTHS
     Route: 048
     Dates: start: 20080301
  2. LORAZEPAM [Concomitant]
  3. SYNTHROID [Concomitant]
  4. LISINOPRIL [Concomitant]
  5. PRAVASTATIN [Concomitant]

REACTIONS (7)
  - ABDOMINAL PAIN [None]
  - CONSTIPATION [None]
  - DYSPHAGIA [None]
  - FEELING HOT [None]
  - HEADACHE [None]
  - NIGHTMARE [None]
  - THROAT TIGHTNESS [None]
